FAERS Safety Report 6576087-7 (Version None)
Quarter: 2010Q1

REPORT INFORMATION
  Report Type: 
  Country: None (occurrence: None)
  Receive Date: 20100209
  Receipt Date: 20100202
  Transmission Date: 20100710
  Serious: Yes (Hospitalization)
  Sender: FDA-Public Use
  Company Number: PHHO2009JP16110

PATIENT
  Sex: Male
  Weight: 59 kg

DRUGS (17)
  1. MYCOPHENOLATE MOFETIL [Suspect]
     Indication: RENAL TRANSPLANT
     Dosage: 2 G DAILY
     Route: 048
     Dates: start: 20090513, end: 20100106
  2. MYCOPHENOLATE MOFETIL [Suspect]
     Dosage: 1 G DAILY
     Route: 048
     Dates: start: 20100106, end: 20100112
  3. MYCOPHENOLATE MOFETIL [Suspect]
     Dosage: 1 G DAILY
     Route: 048
     Dates: start: 20100119
  4. NEORAL [Suspect]
     Indication: RENAL TRANSPLANT
     Dosage: 250 MG / DAY
     Route: 048
     Dates: start: 20090618
  5. PREDONINE [Suspect]
     Indication: RENAL TRANSPLANT
     Dosage: 75 MG / DAY
     Route: 048
     Dates: start: 20090617
  6. SIMULECT [Concomitant]
     Indication: RENAL TRANSPLANT
     Dosage: 20 MG, (DAY 0)
     Route: 042
     Dates: start: 20090512, end: 20090512
  7. SIMULECT [Concomitant]
     Dosage: 20 MG, (DAY 4)
     Route: 042
     Dates: start: 20090516, end: 20090516
  8. DIOVAN [Concomitant]
     Indication: HYPERTENSION
  9. SLOW-FE [Concomitant]
     Indication: ANAEMIA
  10. DALACIN [Concomitant]
     Indication: ACNE
  11. ATELEC [Concomitant]
     Indication: HYPERTENSION
  12. ISODINE [Concomitant]
     Indication: INFECTION PROPHYLAXIS
  13. CEFDINIR [Concomitant]
     Indication: NASOPHARYNGITIS
  14. LAXOBERON [Concomitant]
     Indication: CONSTIPATION
  15. LIPOVAS [Concomitant]
     Indication: HYPERLIPIDAEMIA
  16. ZANTAC [Concomitant]
     Indication: GASTRITIS PROPHYLAXIS
  17. VALGANCICLOVIR HCL [Concomitant]
     Indication: ANTIVIRAL PROPHYLAXIS
     Dosage: 900 MG DAILY

REACTIONS (6)
  - CYTOMEGALOVIRUS VIRAEMIA [None]
  - EAR DISCOMFORT [None]
  - EAR PAIN [None]
  - OROPHARYNGEAL DISCOMFORT [None]
  - OTITIS MEDIA ACUTE [None]
  - PYREXIA [None]
